FAERS Safety Report 7691479-0 (Version None)
Quarter: 2011Q3

REPORT INFORMATION
  Report Type: 
  Country: None (occurrence: None)
  Receive Date: 20110818
  Receipt Date: 20110811
  Transmission Date: 20111222
  Serious: Yes (Other)
  Sender: FDA-Public Use
  Company Number: DE-B.I. PHARMACEUTICALS,INC./RIDGEFIELD-2011-DE-03981DE

PATIENT
  Sex: Female

DRUGS (1)
  1. PRADAXA [Suspect]
     Indication: HIP SURGERY

REACTIONS (1)
  - THROMBOSIS [None]
